FAERS Safety Report 13802232 (Version 4)
Quarter: 2017Q3

REPORT INFORMATION
  Report Type: Spontaneous
  Country: US (occurrence: US)
  Receive Date: 20170727
  Receipt Date: 20170922
  Transmission Date: 20171127
  Serious: Yes (Hospitalization, Other)
  Sender: FDA-Public Use
  Company Number: US-ACTELION-A-NJ2017-157241

PATIENT
  Age: 79 Year
  Sex: Male

DRUGS (2)
  1. OPSUMIT [Suspect]
     Active Substance: MACITENTAN
     Indication: PULMONARY ARTERIAL HYPERTENSION
     Dosage: 10 MG, QD
     Route: 048
     Dates: start: 20161228
  2. OXYGEN. [Concomitant]
     Active Substance: OXYGEN

REACTIONS (8)
  - Respiratory failure [Recovered/Resolved]
  - Infection [Recovered/Resolved]
  - Postoperative wound complication [Unknown]
  - Septic shock [Recovered/Resolved]
  - Drug dose omission [Unknown]
  - Spinal fusion surgery [Recovered/Resolved]
  - Hypotension [Recovered/Resolved]
  - Wound dehiscence [Unknown]

NARRATIVE: CASE EVENT DATE: 20170627
